FAERS Safety Report 10276179 (Version 2)
Quarter: 2014Q3

REPORT INFORMATION
  Report Type: Spontaneous
  Country: IT (occurrence: IT)
  Receive Date: 20140703
  Receipt Date: 20140811
  Transmission Date: 20150326
  Serious: Yes (Death, Hospitalization, Other)
  Sender: FDA-Public Use
  Company Number: IT-ELI_LILLY_AND_COMPANY-IT201406009103

PATIENT
  Age: 67 Year
  Sex: Male
  Weight: 64 kg

DRUGS (8)
  1. ALIMTA [Suspect]
     Active Substance: PEMETREXED DISODIUM
     Indication: CHEMOTHERAPY
     Dosage: 900 MG, OTHER
     Route: 042
     Dates: start: 20140605, end: 20140605
  2. FERRO GRAD C [Concomitant]
     Dosage: UNK
     Route: 048
  3. PARACETAMOL [Concomitant]
     Active Substance: ACETAMINOPHEN
     Route: 048
  4. DELTACORTENE [Concomitant]
     Active Substance: PREDNISONE
     Dosage: 25 MG, QD
     Route: 048
  5. FOLIC ACID. [Concomitant]
     Active Substance: FOLIC ACID
     Dosage: 1 DF, QD
  6. CISPLATIN. [Suspect]
     Active Substance: CISPLATIN
     Indication: CHEMOTHERAPY
     Dosage: 130 MG, OTHER
     Route: 042
     Dates: start: 20140605, end: 20140605
  7. OMEPRAZOL                          /00661201/ [Concomitant]
     Active Substance: OMEPRAZOLE
     Dosage: 20 MG, QD
     Route: 048
  8. TRAMADOL [Concomitant]
     Active Substance: TRAMADOL
     Route: 048

REACTIONS (9)
  - Pancytopenia [Fatal]
  - Metabolic acidosis [Unknown]
  - Neutropenia [Fatal]
  - Asthenia [Unknown]
  - Stomatitis [Fatal]
  - Dehydration [Unknown]
  - Renal failure acute [Fatal]
  - Multi-organ disorder [Unknown]
  - Rash [Fatal]

NARRATIVE: CASE EVENT DATE: 20140613
